FAERS Safety Report 23895716 (Version 1)
Quarter: 2024Q2

REPORT INFORMATION
  Report Type: Report from Study
  Country: GB (occurrence: GB)
  Receive Date: 20240524
  Receipt Date: 20240524
  Transmission Date: 20240716
  Serious: Yes (Other)
  Sender: FDA-Public Use
  Company Number: GB-BAXTER-2024BAX018490

PATIENT
  Age: 79 Year
  Sex: Female

DRUGS (6)
  1. SODIUM CHLORIDE [Suspect]
     Active Substance: SODIUM CHLORIDE
     Indication: Medication dilution
     Dosage: AT AN UNSPECIFIED DOSE DAILY
     Route: 065
     Dates: start: 20240502
  2. SODIUM CHLORIDE [Suspect]
     Active Substance: SODIUM CHLORIDE
     Dosage: AT AN UNSPECIFIED DOSE DAILY WITH CEFTRIAXONE
     Route: 065
     Dates: start: 20240502
  3. WATER FOR INJECTION [Suspect]
     Active Substance: WATER
     Indication: Medication dilution
     Dosage: AT AN UNSPECIFIED DOSE DAILY
     Route: 065
     Dates: start: 20240502
  4. TEICOPLANIN [Suspect]
     Active Substance: TEICOPLANIN
     Indication: Emphysema
     Dosage: 800 MG DAILY (MANUFACTURER: SANOFI AVENTIS)
     Route: 065
     Dates: start: 20240502
  5. CEFTRIAXONE [Suspect]
     Active Substance: CEFTRIAXONE\CEFTRIAXONE SODIUM
     Indication: Emphysema
     Dosage: 4000 MG DAILY (MANUFACTURER: TILLOMED/ QILU)
     Route: 065
     Dates: start: 20240502
  6. UNSPECIFIED INGREDIENT [Suspect]
     Active Substance: UNSPECIFIED INGREDIENT
     Route: 065

REACTIONS (3)
  - Blood potassium decreased [Unknown]
  - Paraesthesia [Unknown]
  - Nervousness [Unknown]

NARRATIVE: CASE EVENT DATE: 20240516
